FAERS Safety Report 12463786 (Version 3)
Quarter: 2016Q3

REPORT INFORMATION
  Report Type: Spontaneous
  Country: US (occurrence: US)
  Receive Date: 20160614
  Receipt Date: 20160818
  Transmission Date: 20161109
  Serious: Yes (Death, Other)
  Sender: FDA-Public Use
  Company Number: US-GLAXOSMITHKLINE-US2016083719

PATIENT
  Sex: Male

DRUGS (3)
  1. CORN STARCH [Concomitant]
     Active Substance: STARCH, CORN
     Indication: HYPERHIDROSIS
     Dosage: UNK
  2. KETOCONAZOLE TABLETS USP [Suspect]
     Active Substance: KETOCONAZOLE
     Indication: PRODUCT USED FOR UNKNOWN INDICATION
     Dosage: UNK
  3. ZEASORB AF [Suspect]
     Active Substance: MICONAZOLE NITRATE
     Indication: HYPERHIDROSIS
     Dosage: UNK
     Dates: start: 1997

REACTIONS (3)
  - Product use issue [Unknown]
  - Prostate cancer [Fatal]
  - Product contamination physical [None]
